FAERS Safety Report 8242478-1 (Version None)
Quarter: 2012Q1

REPORT INFORMATION
  Report Type: 
  Country: None (occurrence: None)
  Receive Date: 20120329
  Receipt Date: 20120319
  Transmission Date: 20120608
  Serious: Yes (Hospitalization, Other)
  Sender: FDA-Public Use
  Company Number: US-JNJFOC-20120309578

PATIENT
  Sex: Male

DRUGS (10)
  1. RISPERDAL [Suspect]
     Indication: SCHIZOAFFECTIVE DISORDER
     Dosage: 4 MG+2 MG IN PM
     Route: 048
  2. RISPERDAL [Suspect]
     Dosage: 4 MG+2 MG IN PM
     Route: 048
  3. RISPERDAL [Suspect]
     Route: 048
     Dates: start: 20010101
  4. RISPERDAL [Suspect]
     Route: 048
     Dates: start: 20010101
  5. RISPERDAL [Suspect]
     Route: 048
  6. LITHIUM CARBONATE [Concomitant]
     Indication: BIPOLAR DISORDER
     Route: 048
     Dates: start: 20010101
  7. RISPERDAL [Suspect]
     Indication: BIPOLAR DISORDER
     Dosage: 4 MG IN AM
     Route: 048
  8. RISPERDAL [Suspect]
     Route: 048
  9. LITHIUM CARBONATE [Concomitant]
     Indication: SCHIZOAFFECTIVE DISORDER
     Route: 048
     Dates: start: 20010101
  10. RISPERDAL [Suspect]
     Dosage: 4 MG IN AM
     Route: 048

REACTIONS (4)
  - HYPERPHAGIA [None]
  - DRUG INEFFECTIVE [None]
  - WEIGHT INCREASED [None]
  - ABNORMAL BEHAVIOUR [None]
